FAERS Safety Report 16101375 (Version 1)
Quarter: 2019Q1

REPORT INFORMATION
  Report Type: Spontaneous
  Country: NL (occurrence: NL)
  Receive Date: 20190321
  Receipt Date: 20190321
  Transmission Date: 20190418
  Serious: Yes (Other)
  Sender: FDA-Public Use
  Company Number: NL-PFIZER INC-2019118826

PATIENT
  Age: 70 Year
  Sex: Male
  Weight: 78 kg

DRUGS (3)
  1. GABAPENTIN. [Suspect]
     Active Substance: GABAPENTIN
     Indication: PERIODIC LIMB MOVEMENT DISORDER
     Dosage: 300 MG, 1X/DAY
     Route: 050
     Dates: start: 20180409, end: 20180423
  2. SIMVASTATINE [Concomitant]
     Active Substance: SIMVASTATIN
     Dosage: 10 MG, 1X/DAY
     Route: 048
     Dates: start: 2015
  3. VALSARTAN. [Concomitant]
     Active Substance: VALSARTAN
     Dosage: 20 MG, 1X/DAY
     Dates: start: 2012

REACTIONS (6)
  - Muscular weakness [Recovered/Resolved]
  - Ligament rupture [Recovered/Resolved]
  - Snoring [Recovered/Resolved]
  - Sleep apnoea syndrome [Recovered/Resolved]
  - Apnoea [Recovered/Resolved]
  - Product use in unapproved indication [Unknown]

NARRATIVE: CASE EVENT DATE: 20180409
